FAERS Safety Report 4577246-5 (Version None)
Quarter: 2005Q1

REPORT INFORMATION
  Report Type: 
  Country: None (occurrence: None)
  Receive Date: 20050210
  Receipt Date: 20050202
  Transmission Date: 20050727
  Serious: Yes (Other)
  Sender: FDA-Public Use
  Company Number: US-BRISTOL-MYERS SQUIBB COMPANY-12846028

PATIENT

DRUGS (1)
  1. MEGACE [Suspect]

REACTIONS (2)
  - DYSPNOEA [None]
  - TREMOR [None]
